FAERS Safety Report 25807585 (Version 6)
Quarter: 2025Q4

REPORT INFORMATION
  Report Type: Report from Study
  Country: EU (occurrence: EU)
  Receive Date: 20250916
  Receipt Date: 20251230
  Transmission Date: 20260118
  Serious: Yes (Hospitalization)
  Sender: DAIICHI
  Company Number: EU-DSJP-DS-2025-163747-NO

PATIENT
  Age: 54 Year
  Sex: Female
  Weight: 100 kg

DRUGS (6)
  1. ENHERTU [Suspect]
     Active Substance: FAM-TRASTUZUMAB DERUXTECAN-NXKI
     Indication: HER2 low breast cancer
     Dosage: 5.4 MG/KG, CYCLIC (6TH LINE)
     Route: 065
     Dates: start: 20250731, end: 20250731
  2. ENHERTU [Suspect]
     Active Substance: FAM-TRASTUZUMAB DERUXTECAN-NXKI
     Indication: Breast cancer metastatic
     Dosage: 3.2 MG/KG, CYCLIC
     Route: 065
     Dates: start: 20250918, end: 20251023
  3. PANTOPRAZOLE [Concomitant]
     Active Substance: PANTOPRAZOLE
     Indication: Gastrointestinal disorder prophylaxis
     Dosage: 20 MG, QD (DAILY)
     Route: 048
     Dates: start: 20240903
  4. CALSIUM [Concomitant]
     Indication: Vitamin supplementation
     Dosage: 1000 IU, QD (DAILY)
     Route: 048
     Dates: start: 20250320
  5. AMPICILLIN [Concomitant]
     Active Substance: AMPICILLIN
     Indication: Infection
     Dosage: 8 G, QID
     Route: 042
     Dates: start: 20250906, end: 20250907
  6. GENTAMICIN [Concomitant]
     Active Substance: GENTAMICIN
     Indication: Infection
     Dosage: 600 MG, QD (DAILY)
     Route: 042
     Dates: start: 20250906, end: 20250907

REACTIONS (3)
  - Enterocolitis infectious [Recovered/Resolved]
  - Arrhythmia [Recovering/Resolving]
  - Pyrexia [Recovered/Resolved]

NARRATIVE: CASE EVENT DATE: 20250902
